FAERS Safety Report 15120195 (Version 2)
Quarter: 2018Q3

REPORT INFORMATION
  Report Type: Report from Study
  Country: CA (occurrence: CA)
  Receive Date: 20180709
  Receipt Date: 20180711
  Transmission Date: 20181010
  Serious: Yes (Hospitalization, Other)
  Sender: FDA-Public Use
  Company Number: CA-GLAXOSMITHKLINE-CA2018GSK121107

PATIENT
  Sex: Female

DRUGS (1)
  1. MEPOLIZUMAB [Suspect]
     Active Substance: MEPOLIZUMAB
     Indication: ASTHMA
     Dosage: 100 MG, Z (MONTHLY)
     Route: 042
     Dates: start: 20180517

REACTIONS (11)
  - Heart rate increased [Unknown]
  - Productive cough [Unknown]
  - Lung disorder [Unknown]
  - Dyspnoea [Unknown]
  - Hospitalisation [Unknown]
  - Wheezing [Unknown]
  - Asthenia [Unknown]
  - Bronchitis [Unknown]
  - Respiratory rate increased [Unknown]
  - Cardiac disorder [Unknown]
  - Drug ineffective [Unknown]
